FAERS Safety Report 5941395-7 (Version None)
Quarter: 2008Q4

REPORT INFORMATION
  Report Type: 
  Country: None (occurrence: None)
  Receive Date: 20081103
  Receipt Date: 20081018
  Transmission Date: 20090506
  Serious: Yes (Other)
  Sender: FDA-Public Use
  Company Number: DSA_62380_2008

PATIENT
  Age: 14 Year
  Sex: Male

DRUGS (3)
  1. DIHYDROERGOTAMINE MESYLATE [Suspect]
     Indication: HEADACHE
     Dosage: (DF ORAL)
     Route: 048
  2. DEPROMEL /00615201/ [Concomitant]
  3. DEPAS [Concomitant]

REACTIONS (1)
  - ASTHMA [None]
